FAERS Safety Report 12270262 (Version 1)
Quarter: 2016Q2

REPORT INFORMATION
  Report Type: Spontaneous
  Country: US (occurrence: None)
  Receive Date: 20160414
  Receipt Date: 20160414
  Transmission Date: 20160815
  Serious: Yes (Life-Threatening, Disabling)
  Sender: FDA-Public Use
  Company Number: None

PATIENT
  Age: 81 Year
  Sex: Male
  Weight: 78.9 kg

DRUGS (2)
  1. ASPIRIN, 81MG [Suspect]
     Active Substance: ASPIRIN
     Indication: STENT PLACEMENT
     Route: 048
  2. CLOPIDOGREL, 75MG [Suspect]
     Active Substance: CLOPIDOGREL BISULFATE
     Indication: STENT PLACEMENT
     Route: 048

REACTIONS (3)
  - Fall [None]
  - Anaemia [None]
  - Subarachnoid haemorrhage [None]

NARRATIVE: CASE EVENT DATE: 20140607
